FAERS Safety Report 6478113-2 (Version None)
Quarter: 2009Q4

REPORT INFORMATION
  Report Type: 
  Country: None (occurrence: None)
  Receive Date: 20091207
  Receipt Date: 20091119
  Transmission Date: 20100525
  Serious: No
  Sender: FDA-Public Use
  Company Number: US-B.I. PHARMACEUTICALS,INC./RIDGEFIELD-2009-BP-13521BP

PATIENT
  Sex: Female

DRUGS (8)
  1. ZANTAC 150 [Suspect]
     Indication: ABDOMINAL PAIN UPPER
     Dosage: 150 MG
     Route: 048
     Dates: start: 20091109, end: 20091110
  2. ZANTAC 150 [Suspect]
     Indication: ABDOMINAL DISCOMFORT
  3. FOSAMAX [Suspect]
     Indication: OSTEOPOROSIS
     Dates: start: 20091101
  4. NEURONTIN [Concomitant]
     Indication: TRIGEMINAL NEURALGIA
  5. KLONOPIN [Concomitant]
     Indication: TRIGEMINAL NEURALGIA
  6. DEPAKOTE [Concomitant]
     Indication: TRIGEMINAL NEURALGIA
  7. SYNTHROID [Concomitant]
     Indication: THYROID DISORDER
  8. CELEXA [Concomitant]
     Indication: DEPRESSION

REACTIONS (3)
  - PRURITUS [None]
  - RASH [None]
  - TRIGEMINAL NEURALGIA [None]
